FAERS Safety Report 10019907 (Version 1)
Quarter: 2014Q1

REPORT INFORMATION
  Report Type: Spontaneous
  Country: US (occurrence: US)
  Receive Date: 20140318
  Receipt Date: 20140318
  Transmission Date: 20141002
  Serious: No
  Sender: FDA-Public Use
  Company Number: US-GALDERMA-US14000441

PATIENT
  Age: 68 Year
  Sex: Female

DRUGS (14)
  1. MIRVASO (BRIMONIDINE) TOPICAL GEL, 0.33% [Suspect]
     Indication: ROSACEA
     Dosage: 0.33%
     Route: 061
     Dates: start: 20140101
  2. LEVAQUIN [Concomitant]
     Indication: SKIN ULCER
     Route: 048
     Dates: start: 20140116
  3. CICLOPIROX [Concomitant]
     Indication: NAIL DISORDER
     Route: 061
  4. AVEENO MOISTURIZER [Concomitant]
     Indication: DRY SKIN PROPHYLAXIS
     Route: 061
  5. LOREAL MOISTURIZER [Concomitant]
     Indication: DRY SKIN PROPHYLAXIS
     Route: 061
  6. NUANCE DARK SPOT CORRECTOR [Concomitant]
     Indication: SKIN HYPERPIGMENTATION
     Route: 061
  7. EYE CREAM [Concomitant]
     Route: 061
  8. NOSE ANTI SHINE PRODUCT [Concomitant]
     Route: 061
  9. HERBAL TONER [Concomitant]
     Route: 061
  10. NENUTROGENA ANTI AGING CREAM [Concomitant]
     Route: 061
  11. NUANCE ANTI AGING CREAM [Concomitant]
     Route: 061
  12. ULTRA REFINED EMU OIL [Concomitant]
     Indication: THERAPEUTIC SKIN CARE TOPICAL
     Route: 061
  13. CETAPHIL [Concomitant]
     Indication: THERAPEUTIC SKIN CARE TOPICAL
     Route: 061
  14. PARA OIL CLEANSING SOAP [Concomitant]
     Indication: THERAPEUTIC SKIN CARE TOPICAL
     Route: 061

REACTIONS (4)
  - Condition aggravated [Not Recovered/Not Resolved]
  - Flushing [Not Recovered/Not Resolved]
  - Erythema [Not Recovered/Not Resolved]
  - Inappropriate schedule of drug administration [Not Recovered/Not Resolved]
